FAERS Safety Report 8967822 (Version 1)
Quarter: 2012Q4

REPORT INFORMATION
  Report Type: Spontaneous
  Country: DK (occurrence: None)
  Receive Date: 20121210
  Receipt Date: 20121210
  Transmission Date: 20130627
  Serious: Yes (Hospitalization)
  Sender: FDA-Public Use
  Company Number: 2012MA013857

PATIENT
  Age: 59 Year
  Sex: Female

DRUGS (1)
  1. TRAMADOL HYDROCHLORIDE [Suspect]
     Route: 048

REACTIONS (6)
  - Chest pain [None]
  - Palpitations [None]
  - Dyspnoea [None]
  - Pain in jaw [None]
  - Drug dose omission [None]
  - Withdrawal syndrome [None]
